FAERS Safety Report 12078589 (Version 5)
Quarter: 2017Q1

REPORT INFORMATION
  Report Type: Report from Study
  Country: US (occurrence: US)
  Receive Date: 20160216
  Receipt Date: 20170118
  Transmission Date: 20170428
  Serious: No
  Sender: FDA-Public Use
  Company Number: US-AMGEN-USASL2016017915

PATIENT
  Age: 45 Year
  Sex: Female
  Weight: 120.6 kg

DRUGS (3)
  1. ENBREL [Suspect]
     Active Substance: ETANERCEPT
     Dosage: 50 MG, QWK
     Route: 065
  2. METHOTREXATE. [Concomitant]
     Active Substance: METHOTREXATE
     Dosage: UNK
  3. ENBREL [Suspect]
     Active Substance: ETANERCEPT
     Indication: RHEUMATOID ARTHRITIS
     Dosage: 50 MG, QWK
     Route: 065
     Dates: start: 20151119

REACTIONS (18)
  - Inappropriate schedule of drug administration [Unknown]
  - Malaise [Unknown]
  - Dizziness [Unknown]
  - Hyperhidrosis [Unknown]
  - Drug administered at inappropriate site [Unknown]
  - Injection site pain [Unknown]
  - Injection site erythema [Unknown]
  - Drug dose omission [Unknown]
  - Headache [Unknown]
  - Epistaxis [Unknown]
  - Oral herpes [Unknown]
  - Accidental exposure to product [Unknown]
  - Wrong technique in product usage process [Unknown]
  - Chest discomfort [Unknown]
  - Nasopharyngitis [Unknown]
  - Injection site bruising [Recovered/Resolved]
  - Device issue [Unknown]
  - Feeling abnormal [Unknown]

NARRATIVE: CASE EVENT DATE: 201512
